FAERS Safety Report 5218980-3 (Version None)
Quarter: 2007Q1

REPORT INFORMATION
  Report Type: 
  Country: None (occurrence: None)
  Receive Date: 20070125
  Receipt Date: 20070117
  Transmission Date: 20070707
  Serious: Yes (Hospitalization)
  Sender: FDA-Public Use
  Company Number: FR-ROCHE-467839

PATIENT
  Age: 60 Year
  Sex: Female
  Weight: 68 kg

DRUGS (6)
  1. VESANOID [Suspect]
     Indication: ACUTE MYELOID LEUKAEMIA
     Route: 048
     Dates: start: 20060818, end: 20060905
  2. CARDIOXANE [Suspect]
     Route: 042
     Dates: start: 20060822, end: 20060824
  3. ZOFRAN [Suspect]
     Indication: VOMITING
     Dosage: 2 DOSES TAKEN EVERY DAY.
     Route: 042
     Dates: start: 20060822, end: 20060905
  4. PRIMPERAN [Suspect]
     Indication: VOMITING
     Route: 042
     Dates: end: 20060829
  5. CERUBIDINE [Suspect]
     Route: 042
     Dates: start: 20060822, end: 20060824
  6. ARACYTINE [Suspect]
     Route: 042
     Dates: start: 20060822, end: 20060828

REACTIONS (11)
  - GAMMA-GLUTAMYLTRANSFERASE INCREASED [None]
  - HAEMOPTYSIS [None]
  - HEPATIC ENZYME INCREASED [None]
  - HYPOXIA [None]
  - LIVER DISORDER [None]
  - PANCREATIC ENZYMES INCREASED [None]
  - PLEURAL EFFUSION [None]
  - PNEUMOCYSTIS JIROVECI PNEUMONIA [None]
  - PNEUMONIA [None]
  - RENAL FAILURE ACUTE [None]
  - WEIGHT INCREASED [None]
